FAERS Safety Report 8901917 (Version 1)
Quarter: 2012Q4

REPORT INFORMATION
  Report Type: Spontaneous
  Country: US (occurrence: None)
  Receive Date: 20121109
  Receipt Date: 20121109
  Transmission Date: 20130627
  Serious: Yes (Disabling)
  Sender: FDA-Public Use
  Company Number: None

PATIENT
  Age: 36 Year
  Sex: Female
  Weight: 65.77 kg

DRUGS (2)
  1. ZOMETA [Suspect]
     Indication: BREAST CANCER
  2. CHEMOTHERAPY [Concomitant]

REACTIONS (2)
  - Jaw disorder [None]
  - Bone loss [None]
